FAERS Safety Report 11343322 (Version 3)
Quarter: 2015Q3

REPORT INFORMATION
  Report Type: Spontaneous
  Country: JP (occurrence: JP)
  Receive Date: 20150806
  Receipt Date: 20150827
  Transmission Date: 20151125
  Serious: Yes (Life-Threatening, Hospitalization, Other)
  Sender: FDA-Public Use
  Company Number: JP-009507513-1507JPN014126

PATIENT
  Age: 79 Year
  Sex: Male
  Weight: 51 kg

DRUGS (10)
  1. CUBICIN [Suspect]
     Active Substance: DAPTOMYCIN
     Indication: PNEUMONIA
     Dosage: 350 MG, QD
     Route: 041
     Dates: start: 20150714, end: 20150714
  2. CUBICIN [Suspect]
     Active Substance: DAPTOMYCIN
     Dosage: 350 MG, QD
     Route: 041
     Dates: start: 20150721, end: 20150721
  3. TULOBUTEROL [Concomitant]
     Active Substance: TULOBUTEROL
     Indication: ASTHMA
     Dosage: 1 MG, QD, FORMULATION: TAP, ROUTE: TRANSDEMAL
     Dates: start: 20150105
  4. CUBICIN [Suspect]
     Active Substance: DAPTOMYCIN
     Dosage: 350 MG, QD
     Route: 041
     Dates: start: 20150716, end: 20150716
  5. BROTIZOLAM [Concomitant]
     Active Substance: BROTIZOLAM
     Indication: INSOMNIA
     Dosage: 0.25 MG, QD
     Route: 048
     Dates: start: 20150105
  6. CLARITIN [Concomitant]
     Active Substance: LORATADINE
     Indication: DERMATITIS
     Dosage: 10 MG, QD
     Route: 048
  7. CALCIUM CARBONATE. [Concomitant]
     Active Substance: CALCIUM CARBONATE
     Indication: RENAL FAILURE
     Dosage: 500 MG, TID
     Route: 048
     Dates: start: 20150105
  8. LANSOPRAZOLE. [Concomitant]
     Active Substance: LANSOPRAZOLE
     Indication: OESOPHAGITIS
     Dosage: 15 MG, QD
     Route: 048
     Dates: start: 20150105
  9. HERBAL NOS [Concomitant]
     Active Substance: HERBALS
     Indication: CONSTIPATION
     Dosage: 2.5 G, TID
     Route: 048
     Dates: start: 20150105
  10. MONILAC [Concomitant]
     Active Substance: LACTULOSE
     Indication: HEPATIC FAILURE
     Dosage: 10 ML, TID
     Route: 048
     Dates: start: 20150105

REACTIONS (5)
  - Epistaxis [Recovered/Resolved]
  - Anaemia [Recovered/Resolved]
  - Epistaxis [Recovered/Resolved]
  - Epistaxis [Not Recovered/Not Resolved]
  - Drug administration error [Unknown]

NARRATIVE: CASE EVENT DATE: 201507
